FAERS Safety Report 24106781 (Version 1)
Quarter: 2024Q3

REPORT INFORMATION
  Report Type: Spontaneous
  Country: US (occurrence: None)
  Receive Date: 20240717
  Receipt Date: 20240717
  Transmission Date: 20241016
  Serious: Yes (Hospitalization, Other)
  Sender: ASTRAZENECA
  Company Number: 2024A071555

PATIENT
  Age: 54 Year
  Sex: Male
  Weight: 174.4 kg

DRUGS (21)
  1. OMEPRAZOLE [Suspect]
     Active Substance: OMEPRAZOLE
     Route: 048
  2. VUDALIMAB [Suspect]
     Active Substance: VUDALIMAB
     Indication: Adenocarcinoma
     Route: 042
     Dates: start: 20240130, end: 20240130
  3. VUDALIMAB [Suspect]
     Active Substance: VUDALIMAB
     Indication: Adenocarcinoma
     Route: 042
     Dates: start: 20240117, end: 20240117
  4. VUDALIMAB [Suspect]
     Active Substance: VUDALIMAB
     Indication: Adenocarcinoma
     Route: 042
     Dates: start: 20240103, end: 20240103
  5. VUDALIMAB [Suspect]
     Active Substance: VUDALIMAB
     Indication: Adenocarcinoma
     Route: 042
     Dates: start: 20171010
  6. CARBOPLATIN [Suspect]
     Active Substance: CARBOPLATIN
     Indication: Adenocarcinoma
     Dosage: 3 MG/ML/MIN
     Route: 042
     Dates: start: 20240103, end: 20240103
  7. CABAZITAXEL [Suspect]
     Active Substance: CABAZITAXEL
     Indication: Adenocarcinoma
     Dosage: 15 MG/M2
     Route: 042
     Dates: start: 20240103, end: 20240103
  8. ALBUTEROL [Concomitant]
     Active Substance: ALBUTEROL
     Dates: start: 20200715
  9. ROPINIROLE [Concomitant]
     Active Substance: ROPINIROLE
     Dates: start: 20221005
  10. FENTANYL [Concomitant]
     Active Substance: FENTANYL\FENTANYL CITRATE
     Dates: start: 20231214
  11. OXYCODONE [Concomitant]
     Active Substance: OXYCODONE
     Dates: start: 20180131
  12. TYLENOL [Concomitant]
     Active Substance: ACETAMINOPHEN
     Dates: start: 20190709
  13. OXYBUTYNIN [Concomitant]
     Active Substance: OXYBUTYNIN\OXYBUTYNIN CHLORIDE
     Dates: start: 20230824
  14. NARCAN [Concomitant]
     Active Substance: NALOXONE HYDROCHLORIDE
     Dates: start: 20231025
  15. SENNOSIDES [Concomitant]
     Active Substance: SENNOSIDES
     Dates: start: 20231025
  16. SILODOSIN [Concomitant]
     Active Substance: SILODOSIN
     Dates: start: 20190709
  17. MELATONIN [Concomitant]
     Active Substance: MELATONIN
     Dates: start: 20231102
  18. CALCIUM CARBONATE [Concomitant]
     Active Substance: CALCIUM CARBONATE
     Dates: start: 20190703
  19. CHOLECALCIFEROL [Concomitant]
     Active Substance: CHOLECALCIFEROL
     Dates: start: 20190709
  20. NYSTATIN [Concomitant]
     Active Substance: NYSTATIN
     Dates: start: 20230712
  21. MICONAZOLE [Concomitant]
     Active Substance: MICONAZOLE
     Dates: start: 20230828

REACTIONS (20)
  - Anaemia [Recovered/Resolved]
  - Malignant neoplasm progression [Unknown]
  - Neoplasm prostate [Unknown]
  - Decreased appetite [Unknown]
  - Blood bilirubin increased [Unknown]
  - Urinary tract infection [Unknown]
  - Haemoglobin increased [Unknown]
  - Hypocalcaemia [Unknown]
  - Proteinuria [Unknown]
  - Haematuria [Unknown]
  - Nausea [Unknown]
  - COVID-19 [Unknown]
  - Troponin increased [Unknown]
  - Fatigue [Unknown]
  - Dizziness [Unknown]
  - Muscular weakness [Unknown]
  - Haemorrhage [Unknown]
  - Platelet count decreased [Unknown]
  - Chromaturia [Unknown]
  - Urinary retention [Unknown]

NARRATIVE: CASE EVENT DATE: 20231221
